FAERS Safety Report 7076882-4 (Version None)
Quarter: 2010Q4

REPORT INFORMATION
  Report Type: 
  Country: None (occurrence: None)
  Receive Date: 20101101
  Receipt Date: 20101026
  Transmission Date: 20110411
  Serious: Yes (Death)
  Sender: FDA-Public Use
  Company Number: JP-BAYER-200914555BYL

PATIENT
  Age: 61 Year
  Sex: Male
  Weight: 82 kg

DRUGS (11)
  1. NEXAVAR [Suspect]
     Indication: HEPATIC NEOPLASM MALIGNANT
     Dosage: TOTAL DAILY DOSE: 800 MG  UNIT DOSE: 200 MG
     Route: 048
     Dates: start: 20091006, end: 20091021
  2. URSO 250 [Concomitant]
     Indication: HEPATITIS B
     Dosage: UNIT DOSE: 100 MG
     Route: 048
     Dates: start: 20030820, end: 20091112
  3. TAKEPRON [Concomitant]
     Dosage: UNIT DOSE: 15 MG
     Route: 048
     Dates: start: 20090604, end: 20091112
  4. BARACLUDE [Concomitant]
     Indication: HEPATITIS B
     Dosage: UNIT DOSE: 0.5 MG
     Route: 048
     Dates: start: 20090604, end: 20091115
  5. LIVACT [Concomitant]
     Indication: HEPATIC CIRRHOSIS
     Dosage: UNIT DOSE: 4.15 G
     Route: 048
     Dates: start: 20090604, end: 20091115
  6. PROMAC [Concomitant]
     Dosage: UNIT DOSE: 75 MG
     Route: 048
     Dates: start: 20090723, end: 20091115
  7. OXYCONTIN [Concomitant]
     Indication: CANCER PAIN
     Dosage: UNIT DOSE: 5 MG
     Route: 048
     Dates: start: 20091001, end: 20091115
  8. MAGMITT [Concomitant]
     Indication: CONSTIPATION
     Dosage: UNIT DOSE: 330 MG
     Route: 048
     Dates: start: 20091001, end: 20091115
  9. NOVAMIN [Concomitant]
     Dosage: UNIT DOSE: 5 MG
     Route: 048
     Dates: start: 20091001, end: 20091115
  10. CONCENTRATED RED CELLS [Concomitant]
     Indication: TRANSFUSION
     Dosage: 6 UNITS
     Route: 042
     Dates: start: 20091116, end: 20091116
  11. FRESH FROZEN PLASMA [Concomitant]
     Indication: TRANSFUSION
     Dosage: 4 UNITS
     Route: 042
     Dates: start: 20091116, end: 20091116

REACTIONS (2)
  - HEPATIC FAILURE [None]
  - PALMAR-PLANTAR ERYTHRODYSAESTHESIA SYNDROME [None]
